FAERS Safety Report 6793303-7 (Version None)
Quarter: 2010Q2

REPORT INFORMATION
  Report Type: 
  Country: None (occurrence: None)
  Receive Date: 20100624
  Receipt Date: 20100216
  Transmission Date: 20101027
  Serious: Yes (Death)
  Sender: FDA-Public Use
  Company Number: US-MYLANLABS-2009S1019549

PATIENT
  Age: 49 Year
  Sex: Female
  Weight: 53.07 kg

DRUGS (4)
  1. CLOZAPINE [Suspect]
     Indication: SCHIZOPHRENIA, PARANOID TYPE
     Route: 048
     Dates: start: 20080101, end: 20091001
  2. CLOZAPINE [Suspect]
     Route: 048
     Dates: start: 20051001
  3. LORAZEPAM [Concomitant]
     Indication: ANXIETY
     Route: 048
  4. LORAZEPAM [Concomitant]
     Dosage: ONE DOSE DAILY PRN IN ADDITION TO THE TID DOSING

REACTIONS (1)
  - MYOCARDIAL INFARCTION [None]
